FAERS Safety Report 6854241-4 (Version None)
Quarter: 2010Q3

REPORT INFORMATION
  Report Type: 
  Country: None (occurrence: None)
  Receive Date: 20100717
  Receipt Date: 20071226
  Transmission Date: 20110219
  Serious: No
  Sender: FDA-Public Use
  Company Number: US-PFIZER INC-2008000820

PATIENT
  Sex: Female
  Weight: 89.8 kg

DRUGS (7)
  1. CHANTIX [Suspect]
     Indication: EX-TOBACCO USER
     Dates: start: 20071224
  2. LIPITOR [Concomitant]
  3. ACETYLSALICYLIC ACID [Concomitant]
  4. HYDROCHLOROTHIAZIDE [Concomitant]
     Indication: OEDEMA PERIPHERAL
  5. ALL OTHER THERAPEUTIC PRODUCTS [Concomitant]
  6. CALCIUM WITH VITAMIN D [Concomitant]
  7. ADVIL LIQUI-GELS [Concomitant]

REACTIONS (1)
  - NAUSEA [None]
